FAERS Safety Report 4284904-9 (Version None)
Quarter: 2004Q1

REPORT INFORMATION
  Report Type: 
  Country: None (occurrence: None)
  Receive Date: 20040121
  Receipt Date: 20021121
  Transmission Date: 20041129
  Serious: Yes (Hospitalization)
  Sender: FDA-Public Use
  Company Number: A03200201407

PATIENT
  Age: 41 Year
  Sex: Male

DRUGS (5)
  1. PLAVIX [Suspect]
     Dosage: 75 MG QD - ORAL
     Route: 048
     Dates: start: 20021101, end: 20021101
  2. SIMVASTATIN [Concomitant]
  3. FENOFIBRATE [Concomitant]
  4. ISOSORBIDE MONONITRATE [Concomitant]
  5. LEVOTHYROXINE SODIUM [Concomitant]

REACTIONS (4)
  - HAEMOLYTIC ANAEMIA [None]
  - RENAL FAILURE [None]
  - THROMBOCYTOPENIA [None]
  - THROMBOTIC THROMBOCYTOPENIC PURPURA [None]
